FAERS Safety Report 5418742-8 (Version None)
Quarter: 2007Q3

REPORT INFORMATION
  Report Type: 
  Country: None (occurrence: None)
  Receive Date: 20070817
  Receipt Date: 20070806
  Transmission Date: 20080115
  Serious: Yes (Other)
  Sender: FDA-Public Use
  Company Number: JP-PFIZER INC-2007062229

PATIENT
  Sex: Female
  Weight: 43 kg

DRUGS (2)
  1. ALPRAZOLAM [Suspect]
     Indication: DEPRESSION
     Dates: start: 20070711, end: 20070724
  2. ZOLOFT [Suspect]
     Indication: DEPRESSION

REACTIONS (10)
  - ASTHENIA [None]
  - CONVULSION [None]
  - DYSARTHRIA [None]
  - EYE MOVEMENT DISORDER [None]
  - HEADACHE [None]
  - HYPERPHAGIA [None]
  - NAUSEA [None]
  - PANIC ATTACK [None]
  - SOMATOFORM DISORDER [None]
  - TREMOR [None]
